FAERS Safety Report 24023729 (Version 2)
Quarter: 2024Q3

REPORT INFORMATION
  Report Type: Report from Study
  Country: AT (occurrence: AT)
  Receive Date: 20240627
  Receipt Date: 20240710
  Transmission Date: 20241017
  Serious: No
  Sender: ROCHE
  Company Number: AT-ROCHE-2973586

PATIENT
  Age: 69 Year
  Sex: Male
  Weight: 52.5 kg

DRUGS (11)
  1. ALECTINIB [Suspect]
     Active Substance: ALECTINIB
     Indication: Non-small cell lung cancer metastatic
     Route: 048
     Dates: start: 20210930
  2. AMLODIPINE [Concomitant]
     Active Substance: AMLODIPINE BESYLATE
     Indication: Hypertension
     Dosage: YES
     Route: 048
  3. LORLATINIB [Concomitant]
     Active Substance: LORLATINIB
     Dates: start: 20221222
  4. ASPIRIN [Concomitant]
     Active Substance: ASPIRIN
     Route: 048
     Dates: start: 20210908
  5. SALMECOMP [Concomitant]
     Route: 055
  6. FENOTEROL HYDROBROMIDE\IPRATROPIUM BROMIDE [Concomitant]
     Active Substance: FENOTEROL HYDROBROMIDE\IPRATROPIUM BROMIDE
     Dosage: 2 PUFF
     Route: 055
  7. HALCION [Concomitant]
     Active Substance: TRIAZOLAM
     Route: 048
     Dates: start: 20210923
  8. ACETAMINOPHEN [Concomitant]
     Active Substance: ACETAMINOPHEN
     Route: 048
     Dates: start: 20211005
  9. NOVALGIN (AUSTRIA) [Concomitant]
     Route: 048
     Dates: start: 20211005
  10. DOXYCYCLINE [Concomitant]
     Active Substance: DOXYCYCLINE\DOXYCYCLINE HYCLATE
     Route: 048
     Dates: start: 20221216, end: 20221220
  11. FERINJECT [Concomitant]
     Active Substance: FERRIC CARBOXYMALTOSE
     Route: 042
     Dates: start: 20221214, end: 20221214

REACTIONS (2)
  - Blood alkaline phosphatase increased [Not Recovered/Not Resolved]
  - Platelet count increased [Not Recovered/Not Resolved]

NARRATIVE: CASE EVENT DATE: 20211123
